FAERS Safety Report 15562135 (Version 3)
Quarter: 2018Q4

REPORT INFORMATION
  Report Type: Report from Study
  Country: US (occurrence: US)
  Receive Date: 20181029
  Receipt Date: 20181217
  Transmission Date: 20190205
  Serious: Yes (Hospitalization, Other)
  Sender: FDA-Public Use
  Company Number: US-TESARO-US-2018TSO04500

PATIENT
  Age: 58 Year
  Sex: Female

DRUGS (3)
  1. ZEJULA [Suspect]
     Active Substance: NIRAPARIB
     Indication: BREAST NEOPLASM
     Dosage: 200 MG, QPM
     Route: 048
     Dates: start: 20180814, end: 2018
  2. ZEJULA [Suspect]
     Active Substance: NIRAPARIB
     Indication: CHOLANGIOCARCINOMA
  3. ZEJULA [Suspect]
     Active Substance: NIRAPARIB
     Indication: OVARIAN CANCER

REACTIONS (5)
  - Nausea [Recovered/Resolved]
  - Intentional underdose [Unknown]
  - Product use in unapproved indication [Unknown]
  - Duodenal obstruction [Not Recovered/Not Resolved]
  - Complications of transplanted liver [Not Recovered/Not Resolved]

NARRATIVE: CASE EVENT DATE: 201808
